FAERS Safety Report 9949538 (Version 1)
Quarter: 2014Q1

REPORT INFORMATION
  Report Type: Report from Study
  Country: GR (occurrence: GR)
  Receive Date: 20140304
  Receipt Date: 20140304
  Transmission Date: 20141002
  Serious: Yes (Congenital Anomaly)
  Sender: FDA-Public Use
  Company Number: GR-US-EMD SERONO, INC.-7272461

PATIENT
  Age: 0 Day
  Sex: Male

DRUGS (1)
  1. REBIF [Suspect]
     Indication: MULTIPLE SCLEROSIS
     Route: 050
     Dates: start: 2009, end: 20111120

REACTIONS (2)
  - Anotia [Unknown]
  - Foetal exposure during pregnancy [Recovered/Resolved]
